FAERS Safety Report 19903775 (Version 1)
Quarter: 2021Q4

REPORT INFORMATION
  Report Type: Spontaneous
  Country: FR (occurrence: FR)
  Receive Date: 20211001
  Receipt Date: 20211001
  Transmission Date: 20220304
  Serious: Yes (Hospitalization)
  Sender: FDA-Public Use
  Company Number: None

PATIENT
  Age: 73 Year
  Sex: Female
  Weight: 55 kg

DRUGS (2)
  1. OXALIPLATIN [Suspect]
     Active Substance: OXALIPLATIN
     Dosage: 132.5 MG
     Route: 042
     Dates: start: 20210908, end: 20210908
  2. IRINOTECAN HYDROCHLORIDE [Suspect]
     Active Substance: IRINOTECAN HYDROCHLORIDE
     Dosage: 280 MG
     Route: 042
     Dates: start: 20210908, end: 20210908

REACTIONS (3)
  - Speech disorder [Recovered/Resolved]
  - Feeling hot [Recovered/Resolved]
  - Jaw disorder [Recovered/Resolved]

NARRATIVE: CASE EVENT DATE: 20210908
